FAERS Safety Report 25269064 (Version 1)
Quarter: 2025Q2

REPORT INFORMATION
  Report Type: Spontaneous
  Country: LT (occurrence: LT)
  Receive Date: 20250505
  Receipt Date: 20250505
  Transmission Date: 20250716
  Serious: Yes (Other)
  Sender: PFIZER
  Company Number: LT-ABBVIE-6241049

PATIENT
  Age: 23 Year
  Sex: Female

DRUGS (10)
  1. IDARUBICIN HYDROCHLORIDE [Suspect]
     Active Substance: IDARUBICIN HYDROCHLORIDE
     Indication: Allogenic stem cell transplantation
  2. DECITABINE [Suspect]
     Active Substance: DECITABINE
     Indication: Allogenic stem cell transplantation
     Route: 065
  3. VENETOCLAX [Suspect]
     Active Substance: VENETOCLAX
     Indication: Allogenic stem cell transplantation
     Dosage: 400 MG, 1X/DAY, ON DAYS 1-5
  4. VENETOCLAX [Suspect]
     Active Substance: VENETOCLAX
     Dosage: 400 MG, 1X/DAY, ON DAYS 6-10
  5. FLUDARABINE [Suspect]
     Active Substance: FLUDARABINE PHOSPHATE
     Indication: Allogenic stem cell transplantation
  6. FLUDARABINE [Suspect]
     Active Substance: FLUDARABINE PHOSPHATE
  7. CYTARABINE [Suspect]
     Active Substance: CYTARABINE
     Indication: Allogenic stem cell transplantation
  8. GRANULOCYTE COLONY-STIMULATING FACTOR NOS [Suspect]
     Active Substance: GRANULOCYTE COLONY-STIMULATING FACTOR NOS
     Indication: Allogenic stem cell transplantation
     Route: 065
  9. BUSULFAN [Suspect]
     Active Substance: BUSULFAN
     Indication: Allogenic stem cell transplantation
  10. CYCLOPHOSPHAMIDE [Suspect]
     Active Substance: CYCLOPHOSPHAMIDE
     Indication: Allogenic stem cell transplantation

REACTIONS (4)
  - Sepsis [Unknown]
  - Pneumonia [Unknown]
  - Mucosal inflammation [Unknown]
  - Palmar-plantar erythrodysaesthesia syndrome [Unknown]
